FAERS Safety Report 8042101-5 (Version None)
Quarter: 2011Q4

REPORT INFORMATION
  Report Type: 
  Country: None (occurrence: None)
  Receive Date: 20111207
  Receipt Date: 20110725
  Transmission Date: 20120403
  Serious: Yes (Hospitalization)
  Sender: FDA-Public Use
  Company Number: AUR-APL-2011-04511

PATIENT
  Age: 58 Year
  Sex: Male

DRUGS (6)
  1. GLYBURIDE [Suspect]
     Indication: DIABETES MELLITUS
     Dosage: 5 MG
     Dates: end: 20110420
  2. LANTUS [Suspect]
     Indication: DIABETES MELLITUS
     Dosage: 100 IU
  3. BLINDED THERAPY (SAXAGLIPTIN/PLACEBO) [Suspect]
     Indication: TYPE 2 DIABETES MELLITUS
     Dates: start: 20110309
  4. GLUCOPHAGE [Suspect]
     Indication: DIABETES MELLITUS
     Dosage: 2000 MG
  5. ACTOS [Suspect]
     Indication: DIABETES MELLITUS
     Dosage: 15 MG
  6. ASPIRIN [Concomitant]

REACTIONS (1)
  - HYPOGLYCAEMIA [None]
